FAERS Safety Report 19774944 (Version 1)
Quarter: 2021Q3

REPORT INFORMATION
  Report Type: Spontaneous
  Country: DE (occurrence: DE)
  Receive Date: 20210901
  Receipt Date: 20210901
  Transmission Date: 20211014
  Serious: Yes (Hospitalization)
  Sender: FDA-Public Use
  Company Number: DE-MICRO LABS LIMITED-ML2021-02126

PATIENT
  Age: 69 Year
  Sex: Female
  Weight: 72 kg

DRUGS (6)
  1. BUPROPION. [Suspect]
     Active Substance: BUPROPION
     Route: 048
  2. CARBIDOPA/LEVODOPA [Concomitant]
     Active Substance: CARBIDOPA\LEVODOPA
     Route: 033
  3. ZOPICLONE [Concomitant]
     Active Substance: ZOPICLONE
     Route: 048
  4. TAMSULOSIN [Concomitant]
     Active Substance: TAMSULOSIN
     Route: 048
  5. AMOXICILLIN?CLAVULANIC ACID [Suspect]
     Active Substance: AMOXICILLIN\CLAVULANIC ACID
     Route: 048
  6. OPICAPONE [Suspect]
     Active Substance: OPICAPONE
     Route: 048

REACTIONS (8)
  - General physical health deterioration [Unknown]
  - Dysuria [Unknown]
  - Language disorder [Unknown]
  - Disorientation [Unknown]
  - Balance disorder [Unknown]
  - Urinary retention [Unknown]
  - Memory impairment [Unknown]
  - Confusional state [Unknown]
